FAERS Safety Report 24625660 (Version 1)
Quarter: 2024Q4

REPORT INFORMATION
  Report Type: Spontaneous
  Country: GB (occurrence: GB)
  Receive Date: 20241115
  Receipt Date: 20241115
  Transmission Date: 20250114
  Serious: Yes (Other)
  Sender: B BRAUN
  Company Number: GB-B.Braun Medical Inc.-2165144

PATIENT
  Age: 51 Year
  Sex: Female
  Weight: 107 kg

DRUGS (3)
  1. METRONIDAZOLE [Suspect]
     Active Substance: METRONIDAZOLE
     Indication: Dental care
     Dates: start: 20241101, end: 20241103
  2. Sandoz gmbh amoxicillin [Concomitant]
  3. CO-DYDRAMOL [Concomitant]
     Active Substance: ACETAMINOPHEN\DIHYDROCODEINE

REACTIONS (2)
  - Splinter haemorrhages [Not Recovered/Not Resolved]
  - Off label use [Not Recovered/Not Resolved]
